FAERS Safety Report 10750502 (Version 1)
Quarter: 2015Q1

REPORT INFORMATION
  Report Type: Spontaneous
  Country: NL (occurrence: NL)
  Receive Date: 20150130
  Receipt Date: 20150130
  Transmission Date: 20150721
  Serious: Yes (Hospitalization)
  Sender: FDA-Public Use
  Company Number: NL-ASTRAZENECA-2015SE07511

PATIENT
  Age: 83 Year
  Sex: Male

DRUGS (4)
  1. MORFINE PLASTERS [Concomitant]
     Dosage: 4 GRAMME AND12,5 MG
  2. SINTROM [Concomitant]
     Active Substance: ACENOCOUMAROL
  3. ZOLADEX [Suspect]
     Active Substance: GOSERELIN ACETATE
     Indication: PROSTATE CANCER
     Route: 058
     Dates: start: 20130904
  4. ZYTIGA [Concomitant]
     Active Substance: ABIRATERONE ACETATE

REACTIONS (1)
  - Atrial fibrillation [Unknown]
